FAERS Safety Report 5256810-4 (Version None)
Quarter: 2007Q1

REPORT INFORMATION
  Report Type: 
  Country: None (occurrence: None)
  Receive Date: 20070306
  Receipt Date: 20070227
  Transmission Date: 20070707
  Serious: Yes (Hospitalization)
  Sender: FDA-Public Use
  Company Number: GB-BOEHRINGER INGELHEIM GMBH, GERMANY-2007-UK-00721UK

PATIENT
  Age: 63 Year
  Sex: Female

DRUGS (16)
  1. MOBIC [Suspect]
     Indication: RHEUMATOID ARTHRITIS
     Dosage: 15MG ONCE DAILY
     Route: 048
     Dates: end: 20070130
  2. ASPIRIN [Suspect]
     Dosage: 75MG ONCE DAILY
     Route: 048
  3. PREDNISOLONE [Suspect]
     Dosage: 5MG DAILY
  4. RISEDRONATE SODIUM [Suspect]
     Dosage: 35MG ONCE A WEEK
  5. ALIMEMAZINE [Concomitant]
     Dosage: 10MG, AS NECESSARY
  6. ATORVASTATIN [Concomitant]
     Dosage: 40MG, ONCE DAILY
  7. ATROVENT [Concomitant]
     Dosage: 2DF
  8. CO-CODAMOL [Concomitant]
     Dosage: AS NECESSARY
  9. GTN-S [Concomitant]
     Dosage: AS NECESSARY
  10. ISOSORBIDE MONONITRATE [Concomitant]
     Dosage: 120MG, DAILY
  11. NICORANDIL [Concomitant]
     Dosage: 10MG, TWICE DAILY
  12. OMEPRAZOLE [Concomitant]
     Dosage: 20MG, ONCE DAILY
  13. SALBUTAMOL [Concomitant]
     Dosage: 2DF, AS NECESSARY
     Route: 055
  14. SANDOCAL [Concomitant]
     Dosage: 2DF, ONCE DAILY
  15. SERETIDE [Concomitant]
     Dosage: 30MG, ONCE DAILY
  16. TILDIEM LA [Concomitant]
     Dosage: 300MG, ONCE DAILY

REACTIONS (6)
  - BARRETT'S OESOPHAGUS [None]
  - CHEST PAIN [None]
  - DUODENAL ULCER [None]
  - DUODENITIS [None]
  - HELICOBACTER PYLORI IDENTIFICATION TEST POSITIVE [None]
  - VOMITING [None]
